FAERS Safety Report 7506819-2 (Version None)
Quarter: 2011Q2

REPORT INFORMATION
  Report Type: 
  Country: None (occurrence: None)
  Receive Date: 20110526
  Receipt Date: 20110516
  Transmission Date: 20111010
  Serious: Yes (Hospitalization)
  Sender: FDA-Public Use
  Company Number: A0929012A

PATIENT
  Sex: Male

DRUGS (4)
  1. AVANDIA [Suspect]
     Route: 065
  2. NOVOLOG [Concomitant]
  3. MULTIPLE MEDICATIONS [Concomitant]
  4. LANTUS [Suspect]
     Dosage: 30UNIT PER DAY
     Route: 058

REACTIONS (4)
  - WALKING AID USER [None]
  - MYOCARDIAL INFARCTION [None]
  - PARAPLEGIA [None]
  - CEREBROVASCULAR ACCIDENT [None]
